FAERS Safety Report 19895262 (Version 1)
Quarter: 2021Q3

REPORT INFORMATION
  Report Type: Spontaneous
  Country: US (occurrence: US)
  Receive Date: 20210929
  Receipt Date: 20210929
  Transmission Date: 20211014
  Serious: No
  Sender: FDA-Public Use
  Company Number: None

PATIENT
  Age: 72 Year
  Sex: Male
  Weight: 92 kg

DRUGS (1)
  1. NIVOLUMAB (NIVOLUMAB 10MG/ML INJ, SOLN) [Suspect]
     Active Substance: NIVOLUMAB
     Indication: MALIGNANT MELANOMA
     Dosage: ?          OTHER ROUTE:IV?
     Dates: start: 20200226, end: 20201007

REACTIONS (11)
  - Ventricular tachycardia [None]
  - Supraventricular tachycardia [None]
  - Rash [None]
  - Immune system disorder [None]
  - Feeling hot [None]
  - Dizziness [None]
  - Myocarditis [None]
  - Myocardial fibrosis [None]
  - Vertigo [None]
  - Fatigue [None]
  - Toxicity to various agents [None]

NARRATIVE: CASE EVENT DATE: 20201029
